FAERS Safety Report 16648391 (Version 11)
Quarter: 2022Q1

REPORT INFORMATION
  Report Type: Report from Study
  Country: US (occurrence: US)
  Receive Date: 20190730
  Receipt Date: 20220330
  Transmission Date: 20220423
  Serious: Yes (Hospitalization, Other)
  Sender: FDA-Public Use
  Company Number: US-NOVARTISPH-PHEH2019US031305

PATIENT
  Age: 23 Year
  Sex: Female
  Weight: 56.689 kg

DRUGS (6)
  1. AFINITOR DISPERZ [Suspect]
     Active Substance: EVEROLIMUS
     Indication: Partial seizures
     Dosage: 8 MG, QD
     Route: 048
     Dates: start: 20190717
  2. AFINITOR DISPERZ [Suspect]
     Active Substance: EVEROLIMUS
     Dosage: 9 MG, QD
     Route: 048
     Dates: start: 20190716, end: 20210608
  3. AFINITOR DISPERZ [Suspect]
     Active Substance: EVEROLIMUS
     Dosage: 8 MG, QD
     Route: 048
  4. DILANTIN [Concomitant]
     Active Substance: PHENYTOIN
     Indication: Product used for unknown indication
     Dosage: UNK
     Route: 065
  5. LAMICTAL [Concomitant]
     Active Substance: LAMOTRIGINE
     Indication: Product used for unknown indication
     Dosage: UNK
     Route: 065
  6. ZONISAMIDE [Concomitant]
     Active Substance: ZONISAMIDE
     Indication: Product used for unknown indication
     Dosage: UNK
     Route: 065

REACTIONS (12)
  - Seizure [Unknown]
  - Malignant neoplasm progression [Unknown]
  - Tuberous sclerosis complex [Unknown]
  - Pyrexia [Unknown]
  - Seizure cluster [Recovered/Resolved]
  - Vaginal haemorrhage [Unknown]
  - SARS-CoV-2 test positive [Unknown]
  - Product dose omission issue [Unknown]
  - Body temperature decreased [Unknown]
  - Stomatitis [Unknown]
  - Insomnia [Unknown]
  - Bacterial vaginosis [Recovered/Resolved]

NARRATIVE: CASE EVENT DATE: 20210504
